FAERS Safety Report 7349500-5 (Version None)
Quarter: 2011Q1

REPORT INFORMATION
  Report Type: 
  Country: None (occurrence: None)
  Receive Date: 20110314
  Receipt Date: 20101217
  Transmission Date: 20110831
  Serious: No
  Sender: FDA-Public Use
  Company Number: US-ABBOTT-10P-163-0692695-00

PATIENT
  Sex: Male
  Weight: 104.42 kg

DRUGS (9)
  1. DEPAKOTE [Suspect]
     Indication: ANGER
  2. GLONTAMINE [Concomitant]
     Indication: DEMENTIA ALZHEIMER'S TYPE
  3. CITALOPRAM [Concomitant]
     Indication: PRODUCT USED FOR UNKNOWN INDICATION
  4. LOVASTATIN [Concomitant]
     Indication: PRODUCT USED FOR UNKNOWN INDICATION
  5. NAPROXYM [Concomitant]
     Indication: PRODUCT USED FOR UNKNOWN INDICATION
  6. THYROID MEDICATION [Concomitant]
     Indication: PRODUCT USED FOR UNKNOWN INDICATION
  7. STOOL SOFTNER [Concomitant]
     Indication: PRODUCT USED FOR UNKNOWN INDICATION
  8. MEMANTINI HCL [Concomitant]
     Indication: DEMENTIA ALZHEIMER'S TYPE
  9. UNKNOWN ANTIBIOTIC [Concomitant]
     Indication: PRODUCT USED FOR UNKNOWN INDICATION

REACTIONS (2)
  - NASOPHARYNGITIS [None]
  - PLATELET COUNT DECREASED [None]
